FAERS Safety Report 4985476-3 (Version None)
Quarter: 2006Q2

REPORT INFORMATION
  Report Type: 
  Country: None (occurrence: None)
  Receive Date: 20060428
  Receipt Date: 20050404
  Transmission Date: 20061013
  Serious: No
  Sender: FDA-Public Use
  Company Number: US-GLAXOSMITHKLINE-A0552718A

PATIENT
  Age: 3 Year
  Sex: Female

DRUGS (1)
  1. CUTIVATE [Suspect]
     Indication: ECZEMA

REACTIONS (1)
  - WEIGHT GAIN POOR [None]
